FAERS Safety Report 10607614 (Version 1)
Quarter: 2014Q4

REPORT INFORMATION
  Report Type: Spontaneous
  Country: US (occurrence: None)
  Receive Date: 20141124
  Receipt Date: 20141124
  Transmission Date: 20150529
  Serious: Yes (Hospitalization)
  Sender: FDA-Public Use
  Company Number: None

PATIENT
  Age: 73 Year
  Sex: Male
  Weight: 85.3 kg

DRUGS (8)
  1. MEVACOR [Concomitant]
     Active Substance: LOVASTATIN
  2. COUMADIN [Suspect]
     Active Substance: WARFARIN SODIUM
     Indication: ATRIAL FIBRILLATION
     Dosage: TTHSS
     Route: 048
  3. PROSCAR [Concomitant]
     Active Substance: FINASTERIDE
  4. ASPIRIN. [Suspect]
     Active Substance: ASPIRIN
     Indication: ATRIAL FIBRILLATION
     Dosage: CHRONIC
     Route: 048
  5. CARDIZEM [Concomitant]
     Active Substance: DILTIAZEM HYDROCHLORIDE
  6. AVAPRO SYNTHROID [Concomitant]
  7. FISH OIL [Concomitant]
     Active Substance: FISH OIL
  8. HCTZ [Concomitant]
     Active Substance: HYDROCHLOROTHIAZIDE

REACTIONS (5)
  - Cerebral haemorrhage [None]
  - Cerebrovascular accident [None]
  - Aphasia [None]
  - Hemiplegia [None]
  - Blood pressure systolic increased [None]

NARRATIVE: CASE EVENT DATE: 20140818
